FAERS Safety Report 26075396 (Version 1)
Quarter: 2025Q4

REPORT INFORMATION
  Report Type: Spontaneous
  Country: EU (occurrence: EU)
  Receive Date: 20251121
  Receipt Date: 20251121
  Transmission Date: 20260117
  Serious: Yes (Other)
  Sender: BOEHRINGER INGELHEIM
  Company Number: EU-BoehringerIngelheim-2025-BI-105668

PATIENT
  Age: 75 Year
  Sex: Female
  Weight: 65 kg

DRUGS (6)
  1. NINTEDANIB [Suspect]
     Active Substance: NINTEDANIB
     Indication: Product used for unknown indication
     Dosage: ABOUT ONE YEAR OF TREATMENT
  2. PANTOPRAZOLE [Concomitant]
     Active Substance: PANTOPRAZOLE
     Indication: Product used for unknown indication
  3. LEVOTHYROXINE [Concomitant]
     Active Substance: LEVOTHYROXINE
     Indication: Product used for unknown indication
  4. PREDNISONE [Concomitant]
     Active Substance: PREDNISONE
     Indication: Product used for unknown indication
  5. PHENOBARBITAL [Concomitant]
     Active Substance: PHENOBARBITAL
     Indication: Product used for unknown indication
  6. DIPHENYLHYDANTOIN [Concomitant]
     Active Substance: PHENYTOIN
     Indication: Product used for unknown indication

REACTIONS (6)
  - Hypersensitivity pneumonitis [Unknown]
  - COVID-19 [Unknown]
  - Diarrhoea [Unknown]
  - Weight decreased [Unknown]
  - Pyrexia [Unknown]
  - Bronchiectasis [Unknown]

NARRATIVE: CASE EVENT DATE: 20230301
